FAERS Safety Report 5369526-0 (Version None)
Quarter: 2007Q2

REPORT INFORMATION
  Report Type: 
  Country: None (occurrence: None)
  Receive Date: 20070625
  Receipt Date: 20070615
  Transmission Date: 20071010
  Serious: Yes (Hospitalization)
  Sender: FDA-Public Use
  Company Number: B0472625A

PATIENT
  Age: 47 Year
  Sex: Female

DRUGS (2)
  1. LAPATINIB [Suspect]
     Dosage: 1250MGM2 PER DAY
     Route: 048
     Dates: start: 20070326
  2. CAPECITABINE [Suspect]
     Dosage: 1650MGM2 SEE DOSAGE TEXT
     Route: 048
     Dates: start: 20070326

REACTIONS (4)
  - DIARRHOEA [None]
  - GASTROINTESTINAL TOXICITY [None]
  - GENERAL PHYSICAL HEALTH DETERIORATION [None]
  - RECTAL HAEMORRHAGE [None]
